FAERS Safety Report 8772130 (Version 1)
Quarter: 2012Q4

REPORT INFORMATION
  Report Type: 
  Country: ES (occurrence: ES)
  Receive Date: 20120906
  Receipt Date: 20120906
  Transmission Date: 20130627
  Serious: Yes (Other)
  Sender: FDA-Public Use
  Company Number: ES-SANOFI-AVENTIS-2012SA062688

PATIENT
  Age: 41 Year
  Sex: Male
  Weight: 63 kg

DRUGS (1)
  1. CLEXANE [Suspect]
     Indication: THROMBOSIS PROPHYLAXIS
     Route: 058
     Dates: start: 20120311, end: 20120405

REACTIONS (2)
  - Neck pain [Recovered/Resolved]
  - Nasopharyngitis [Recovered/Resolved]
